FAERS Safety Report 6158565-8 (Version None)
Quarter: 2009Q2

REPORT INFORMATION
  Report Type: 
  Country: None (occurrence: None)
  Receive Date: 20090408
  Receipt Date: 20090121
  Transmission Date: 20091009
  Serious: Yes (Death)
  Sender: FDA-Public Use
  Company Number: BMS-LI-2009-0025-V001

PATIENT
  Age: 47 Year
  Sex: Female

DRUGS (6)
  1. TRAZODONE HCL [Suspect]
  2. METOPROLOL TARTRATE [Suspect]
  3. PHENYTOIN [Suspect]
  4. VENLAFAXINE HYDROCHLORIDE [Suspect]
  5. BENODIAZEPINE [Suspect]
  6. GABAPENTIN [Suspect]

REACTIONS (1)
  - COMPLETED SUICIDE [None]
